FAERS Safety Report 7951568-X (Version None)
Quarter: 2011Q4

REPORT INFORMATION
  Report Type: 
  Country: None (occurrence: None)
  Receive Date: 20111201
  Receipt Date: 20111128
  Transmission Date: 20120403
  Serious: No
  Sender: FDA-Public Use
  Company Number: US-PFIZER INC-2011290626

PATIENT
  Sex: Female
  Weight: 99.8 kg

DRUGS (3)
  1. DEPO-PROVERA [Suspect]
     Indication: CONTRACEPTION
     Dosage: 150 MG, EVERY TWELVE WEEKS
     Dates: start: 19920101
  2. LEVOXYL [Concomitant]
     Indication: THYROID DISORDER
     Dosage: 125 UG, DAILY
     Route: 048
  3. CELEXA [Concomitant]
     Indication: DEPRESSION
     Dosage: 20 MG, DAILY

REACTIONS (1)
  - AMENORRHOEA [None]
